FAERS Safety Report 5838734-4 (Version None)
Quarter: 2008Q3

REPORT INFORMATION
  Report Type: 
  Country: None (occurrence: None)
  Receive Date: 20080808
  Receipt Date: 20080729
  Transmission Date: 20090109
  Serious: Yes (Hospitalization)
  Sender: FDA-Public Use
  Company Number: DE-ABBOTT-08P-062-0468772-00

PATIENT
  Sex: Male
  Weight: 77 kg

DRUGS (2)
  1. KALETRA [Suspect]
     Indication: HIV INFECTION
     Dosage: 800/200 MG
     Route: 048
     Dates: start: 20061018
  2. ABACAVIR SULFATE/LAMIVUDINE [Suspect]
     Indication: HIV INFECTION
     Dosage: 600/300 MG 1X1
     Route: 048
     Dates: start: 20061018

REACTIONS (3)
  - EMPYEMA [None]
  - INFECTION [None]
  - OSTEOMYELITIS [None]
